FAERS Safety Report 25329121 (Version 1)
Quarter: 2025Q2

REPORT INFORMATION
  Report Type: Spontaneous
  Country: US (occurrence: US)
  Receive Date: 20250519
  Receipt Date: 20250519
  Transmission Date: 20250717
  Serious: No
  Sender: NEXUS PHARMACEUTICALS
  Company Number: US-Nexus Pharma-000349

PATIENT
  Sex: Male

DRUGS (1)
  1. EMERPHED [Suspect]
     Active Substance: EPHEDRINE SULFATE
     Indication: Blood pressure management

REACTIONS (4)
  - Device connection issue [Unknown]
  - Device difficult to use [Unknown]
  - Treatment delayed [Unknown]
  - Syringe issue [Unknown]
